FAERS Safety Report 4901400-3 (Version None)
Quarter: 2006Q1

REPORT INFORMATION
  Report Type: 
  Country: None (occurrence: None)
  Receive Date: 20060202
  Receipt Date: 20060202
  Transmission Date: 20060701
  Serious: Yes (Hospitalization)
  Sender: FDA-Public Use
  Company Number: None

PATIENT
  Sex: Male

DRUGS (1)
  1. KETEK [Suspect]
     Indication: OTITIS MEDIA
     Dosage: 400MG  DAILY  PO
     Route: 048
     Dates: start: 20050808, end: 20050812

REACTIONS (3)
  - ABDOMINAL PAIN [None]
  - PANCREATIC ENLARGEMENT [None]
  - PYREXIA [None]
